FAERS Safety Report 7249247-X (Version None)
Quarter: 2011Q1

REPORT INFORMATION
  Report Type: 
  Country: None (occurrence: None)
  Receive Date: 20110128
  Receipt Date: 20110114
  Transmission Date: 20110831
  Serious: Yes (Hospitalization)
  Sender: FDA-Public Use
  Company Number: FR-SANOFI-AVENTIS-2011SA002876

PATIENT
  Age: 61 Year
  Sex: Male

DRUGS (6)
  1. PREVISCAN [Suspect]
     Route: 048
  2. FENOFIBRATE [Suspect]
     Route: 048
  3. DILTIAZEM [Suspect]
     Route: 048
  4. ALFUZOSIN HCL [Suspect]
     Route: 048
  5. GENTAMICIN [Suspect]
     Route: 042
     Dates: start: 20070904, end: 20070911
  6. AMOXICILLIN [Concomitant]
     Route: 065
     Dates: start: 20070904

REACTIONS (1)
  - RENAL FAILURE ACUTE [None]
